FAERS Safety Report 7835645-X (Version None)
Quarter: 2011Q4

REPORT INFORMATION
  Report Type: 
  Country: None (occurrence: None)
  Receive Date: 20111024
  Receipt Date: 20111023
  Transmission Date: 20120403
  Serious: No
  Sender: FDA-Public Use
  Company Number: US-B.I. PHARMACEUTICALS,INC./RIDGEFIELD-2011-BP-24821BP

PATIENT
  Age: 2 Year
  Sex: Female

DRUGS (1)
  1. ZANTAC 150 [Suspect]
     Indication: ACCIDENTAL DRUG INTAKE BY CHILD
     Dosage: 150 MG
     Route: 048
     Dates: start: 20111023, end: 20111023

REACTIONS (1)
  - ACCIDENTAL DRUG INTAKE BY CHILD [None]
